FAERS Safety Report 12908245 (Version 1)
Quarter: 2016Q4

REPORT INFORMATION
  Report Type: Spontaneous
  Country: AR (occurrence: AR)
  Receive Date: 20161103
  Receipt Date: 20161103
  Transmission Date: 20170207
  Serious: Yes (Hospitalization)
  Sender: FDA-Public Use
  Company Number: AR-PFIZER INC-2016362327

PATIENT
  Age: 64 Year
  Sex: Female

DRUGS (1)
  1. XELJANZ [Suspect]
     Active Substance: TOFACITINIB CITRATE
     Indication: RHEUMATOID ARTHRITIS
     Dosage: 5 MG, 2X/DAY
     Dates: start: 20150226

REACTIONS (10)
  - Activities of daily living impaired [Not Recovered/Not Resolved]
  - Bone pain [Recovering/Resolving]
  - Condition aggravated [Recovering/Resolving]
  - Bedridden [Not Recovered/Not Resolved]
  - Pain [Recovered/Resolved]
  - Pneumonia [Recovered/Resolved]
  - Decreased immune responsiveness [Recovered/Resolved]
  - Malaise [Recovering/Resolving]
  - Asthenia [Not Recovered/Not Resolved]
  - Gait disturbance [Not Recovered/Not Resolved]

NARRATIVE: CASE EVENT DATE: 201510
